FAERS Safety Report 6803882-9 (Version None)
Quarter: 2010Q2

REPORT INFORMATION
  Report Type: 
  Country: None (occurrence: None)
  Receive Date: 20100628
  Receipt Date: 20100617
  Transmission Date: 20101027
  Serious: Yes (Hospitalization)
  Sender: FDA-Public Use
  Company Number: CHPA2010US10236

PATIENT
  Age: 44 Year
  Sex: Female
  Weight: 74.376 kg

DRUGS (7)
  1. VOLTAREN [Suspect]
     Indication: OEDEMA PERIPHERAL
     Dosage: 2 G, TID
     Route: 061
     Dates: start: 20100612, end: 20100614
  2. IBUPROFEN (NGX) [Suspect]
     Indication: OEDEMA PERIPHERAL
     Dosage: UNK, UNK
  3. WATER PILLS [Suspect]
     Indication: OEDEMA PERIPHERAL
     Dosage: UNK, UNK
  4. MS CONTIN [Concomitant]
     Indication: PROPHYLAXIS
     Route: 048
  5. MS CONTIN [Concomitant]
     Indication: MIGRAINE
  6. XANAX [Concomitant]
     Indication: NERVOUSNESS
     Route: 048
  7. IMITREX ^GLAXO^ [Concomitant]
     Indication: MIGRAINE

REACTIONS (13)
  - AMNESIA [None]
  - DIZZINESS [None]
  - DRUG INEFFECTIVE FOR UNAPPROVED INDICATION [None]
  - DYSARTHRIA [None]
  - FALL [None]
  - HEADACHE [None]
  - HEMIPARESIS [None]
  - HOT FLUSH [None]
  - LOSS OF CONSCIOUSNESS [None]
  - MENTAL IMPAIRMENT [None]
  - MOVEMENT DISORDER [None]
  - NAUSEA [None]
  - WRONG TECHNIQUE IN DRUG USAGE PROCESS [None]
